FAERS Safety Report 20243513 (Version 1)
Quarter: 2021Q4

REPORT INFORMATION
  Report Type: Spontaneous
  Country: US (occurrence: US)
  Receive Date: 20211228
  Receipt Date: 20211228
  Transmission Date: 20220303
  Serious: Yes (Other)
  Sender: FDA-Public Use
  Company Number: US-SA-SAC20211227001181

PATIENT

DRUGS (1)
  1. ZANTAC [Suspect]
     Active Substance: RANITIDINE HYDROCHLORIDE
     Indication: Haematemesis
     Dosage: UNK

REACTIONS (4)
  - Hepatic cancer [Unknown]
  - Haematemesis [Unknown]
  - Gastric cancer [Unknown]
  - Polyp [Unknown]
